FAERS Safety Report 18637629 (Version 1)
Quarter: 2020Q4

REPORT INFORMATION
  Report Type: Spontaneous
  Country: JP (occurrence: JP)
  Receive Date: 20201219
  Receipt Date: 20201219
  Transmission Date: 20210114
  Serious: Yes (Other)
  Sender: FDA-Public Use
  Company Number: JP-AUROBINDO-AUR-APL-2020-062323

PATIENT
  Age: 5 Year
  Sex: Female

DRUGS (8)
  1. PIRARUBICIN [Concomitant]
     Active Substance: PIRARUBICIN
     Indication: NEUROBLASTOMA
     Dosage: UNK
     Route: 065
  2. CISPLATIN. [Suspect]
     Active Substance: CISPLATIN
     Indication: NEUROBLASTOMA
     Dosage: UNK
     Route: 065
  3. MELPHALAN. [Suspect]
     Active Substance: MELPHALAN
     Indication: NEUROBLASTOMA
     Dosage: 70 MILLIGRAM/SQ. METER, ONCE A DAY
     Route: 042
  4. DANAPAROID [Concomitant]
     Active Substance: DANAPAROID
     Indication: PROPHYLAXIS
     Dosage: UNK
     Route: 065
  5. VINCRISTINE [Concomitant]
     Active Substance: VINCRISTINE
     Indication: NEUROBLASTOMA
     Dosage: UNK
     Route: 065
  6. URSODEOXYCHOLIC ACID [Concomitant]
     Active Substance: URSODIOL
     Indication: PROPHYLAXIS
     Dosage: UNK
     Route: 065
  7. CYCLOPHOSPHAMIDE. [Suspect]
     Active Substance: CYCLOPHOSPHAMIDE
     Indication: NEUROBLASTOMA
     Dosage: UNK
     Route: 065
  8. BUSULFAN. [Suspect]
     Active Substance: BUSULFAN
     Indication: NEUROBLASTOMA
     Dosage: 4.8 MILLIGRAM/KILOGRAM, ONCE A DAY
     Route: 042

REACTIONS (6)
  - Weight increased [Recovering/Resolving]
  - Venoocclusive liver disease [Unknown]
  - Oedema peripheral [Recovering/Resolving]
  - Pulmonary veno-occlusive disease [Recovering/Resolving]
  - Hepatomegaly [Recovering/Resolving]
  - Abdominal pain upper [Recovering/Resolving]
